FAERS Safety Report 9423921 (Version 4)
Quarter: 2014Q1

REPORT INFORMATION
  Report Type: Spontaneous
  Country: US (occurrence: US)
  Receive Date: 20130729
  Receipt Date: 20140324
  Transmission Date: 20141002
  Serious: Yes (Death)
  Sender: FDA-Public Use
  Company Number: US-BIOGENIDEC-2013BI068089

PATIENT
  Age: 56 Year
  Sex: Male

DRUGS (3)
  1. AVONEX [Suspect]
     Indication: MULTIPLE SCLEROSIS
     Route: 030
     Dates: start: 20070624
  2. AVONEX [Suspect]
     Indication: MULTIPLE SCLEROSIS
     Route: 030
     Dates: start: 20110309
  3. AVONEX [Suspect]
     Indication: MULTIPLE SCLEROSIS
     Route: 030
     Dates: end: 20130701

REACTIONS (8)
  - Death [Fatal]
  - Completed suicide [Fatal]
  - Multiple sclerosis [Unknown]
  - Dysuria [Unknown]
  - Gastrointestinal disorder [Unknown]
  - Constipation [Recovered/Resolved]
  - Abasia [Recovered/Resolved]
  - Depression [Unknown]
